FAERS Safety Report 7934744-1 (Version None)
Quarter: 2011Q4

REPORT INFORMATION
  Report Type: 
  Country: None (occurrence: None)
  Receive Date: 20111122
  Receipt Date: 20111107
  Transmission Date: 20120403
  Serious: Yes (Death, Hospitalization)
  Sender: FDA-Public Use
  Company Number: US-WATSON-2011-19316

PATIENT
  Age: 75 Year
  Sex: Male

DRUGS (1)
  1. COLCHICINE [Suspect]
     Indication: GOUT
     Dosage: 1.2 MG ORALLY Q2-4 H, TOTAL OF 12.2 MG OVER 30 H
     Route: 048

REACTIONS (8)
  - HYPOTENSION [None]
  - RENAL FAILURE ACUTE [None]
  - RENAL FAILURE [None]
  - PULSELESS ELECTRICAL ACTIVITY [None]
  - VOMITING [None]
  - DIARRHOEA [None]
  - TOXICITY TO VARIOUS AGENTS [None]
  - CARDIAC ARREST [None]
